FAERS Safety Report 6746011-2 (Version None)
Quarter: 2010Q2

REPORT INFORMATION
  Report Type: 
  Country: None (occurrence: None)
  Receive Date: 20100528
  Receipt Date: 20100518
  Transmission Date: 20101027
  Serious: Yes (Other)
  Sender: FDA-Public Use
  Company Number: JP-PFIZER INC-2010066053

PATIENT
  Age: 35 Year
  Sex: Female

DRUGS (1)
  1. LIPITOR [Suspect]
     Dosage: 5 MG, DAILY
     Route: 048

REACTIONS (4)
  - BLOOD CREATINE INCREASED [None]
  - CHROMATURIA [None]
  - MALAISE [None]
  - RHABDOMYOLYSIS [None]
